FAERS Safety Report 23430223 (Version 3)
Quarter: 2024Q3

REPORT INFORMATION
  Report Type: Spontaneous
  Country: US (occurrence: US)
  Receive Date: 20240123
  Receipt Date: 20240729
  Transmission Date: 20241016
  Serious: Yes (Disabling, Other)
  Sender: ELI LILLY AND CO
  Company Number: US-ELI_LILLY_AND_COMPANY-US202401011482

PATIENT
  Age: 70 Year
  Sex: Female

DRUGS (8)
  1. FORTEO [Suspect]
     Active Substance: TERIPARATIDE
     Indication: Osteoporosis
     Dosage: UNK, UNKNOWN
     Route: 065
     Dates: start: 20240119
  2. FORTEO [Suspect]
     Active Substance: TERIPARATIDE
     Indication: Osteoporosis
     Dosage: UNK, UNKNOWN
     Route: 065
     Dates: start: 20240119
  3. FORTEO [Suspect]
     Active Substance: TERIPARATIDE
     Indication: Osteoporosis
     Dosage: UNK, UNKNOWN
     Route: 065
     Dates: start: 20240119
  4. FORTEO [Suspect]
     Active Substance: TERIPARATIDE
     Indication: Osteoporosis
     Dosage: UNK, UNKNOWN
     Route: 065
     Dates: start: 20240119
  5. FORTEO [Suspect]
     Active Substance: TERIPARATIDE
     Dosage: UNK, UNKNOWN
     Route: 065
  6. FORTEO [Suspect]
     Active Substance: TERIPARATIDE
     Dosage: UNK, UNKNOWN
     Route: 065
  7. FORTEO [Suspect]
     Active Substance: TERIPARATIDE
     Dosage: UNK, UNKNOWN
     Route: 065
  8. FORTEO [Suspect]
     Active Substance: TERIPARATIDE
     Dosage: UNK, UNKNOWN
     Route: 065

REACTIONS (5)
  - Fall [Unknown]
  - Upper limb fracture [Unknown]
  - Incorrect dose administered [Unknown]
  - Hypocalcaemia [Unknown]
  - Therapeutic product ineffective [Unknown]

NARRATIVE: CASE EVENT DATE: 20240119
